FAERS Safety Report 8025800-0 (Version None)
Quarter: 2012Q1

REPORT INFORMATION
  Report Type: 
  Country: None (occurrence: None)
  Receive Date: 20120105
  Receipt Date: 20110812
  Transmission Date: 20120608
  Serious: No
  Sender: FDA-Public Use
  Company Number: US-ABBOTT-11P-163-0846737-00

PATIENT
  Sex: Female

DRUGS (2)
  1. SYNTHROID [Suspect]
     Indication: HYPOTHYROIDISM
     Dates: end: 20110712
  2. SYNTHROID [Suspect]
     Dates: start: 20110812

REACTIONS (4)
  - POOR QUALITY DRUG ADMINISTERED [None]
  - HEADACHE [None]
  - BLOOD PRESSURE INCREASED [None]
  - DIZZINESS [None]
